FAERS Safety Report 6580063-8 (Version None)
Quarter: 2010Q1

REPORT INFORMATION
  Report Type: 
  Country: None (occurrence: None)
  Receive Date: 20100203
  Receipt Date: 20100120
  Transmission Date: 20100710
  Serious: No
  Sender: FDA-Public Use
  Company Number: 007387

PATIENT
  Age: 60 Year
  Sex: Male

DRUGS (1)
  1. PLETAL [Suspect]
     Indication: ARTERIOSCLEROSIS OBLITERANS
     Dosage: 100 MG, TID, ORAL
     Route: 048
     Dates: start: 20080613, end: 20080619

REACTIONS (1)
  - NO ADVERSE EVENT [None]
